FAERS Safety Report 6288620-3 (Version None)
Quarter: 2009Q3

REPORT INFORMATION
  Report Type: 
  Country: None (occurrence: None)
  Receive Date: 20090729
  Receipt Date: 20090720
  Transmission Date: 20100115
  Serious: Yes (Other)
  Sender: FDA-Public Use
  Company Number: FR-TEVA-203099ISR

PATIENT

DRUGS (1)
  1. METHOTREXATE [Suspect]

REACTIONS (2)
  - HEPATITIS B [None]
  - VIRAL LOAD INCREASED [None]
